FAERS Safety Report 11464554 (Version 3)
Quarter: 2015Q3

REPORT INFORMATION
  Report Type: Spontaneous
  Country: US (occurrence: US)
  Receive Date: 20150831
  Receipt Date: 20150903
  Transmission Date: 20151125
  Serious: No
  Sender: FDA-Public Use
  Company Number: US-ELI_LILLY_AND_COMPANY-US200908003283

PATIENT
  Sex: Female

DRUGS (2)
  1. CYMBALTA [Suspect]
     Active Substance: DULOXETINE HYDROCHLORIDE
     Dosage: 60 MG, QD
     Route: 048
     Dates: start: 200907
  2. CYMBALTA [Suspect]
     Active Substance: DULOXETINE HYDROCHLORIDE
     Indication: FIBROMYALGIA
     Dosage: 30 MG, UNKNOWN
     Route: 048
     Dates: start: 200907, end: 200907

REACTIONS (5)
  - Hyperhidrosis [Not Recovered/Not Resolved]
  - Weight increased [Not Recovered/Not Resolved]
  - Drug ineffective [Not Recovered/Not Resolved]
  - Increased appetite [Not Recovered/Not Resolved]
  - Drug screen false positive [Not Recovered/Not Resolved]

NARRATIVE: CASE EVENT DATE: 200907
